FAERS Safety Report 9442540 (Version 2)
Quarter: 2013Q4

REPORT INFORMATION
  Report Type: Spontaneous
  Country: AR (occurrence: AR)
  Receive Date: 20130806
  Receipt Date: 20131107
  Transmission Date: 20140711
  Serious: Yes (Other)
  Sender: FDA-Public Use
  Company Number: AR-PFIZER INC-2013225220

PATIENT
  Age: 5 Year
  Sex: Male

DRUGS (1)
  1. GENOTROPIN [Suspect]
     Indication: PRADER-WILLI SYNDROME
     Dosage: 0.6-1 MG, 6 TIMES WEEKLY
     Dates: start: 20110601

REACTIONS (7)
  - Convulsion [Recovering/Resolving]
  - Lower limb fracture [Recovering/Resolving]
  - Fall [Recovering/Resolving]
  - Sleep apnoea syndrome [Recovering/Resolving]
  - Testicular disorder [Unknown]
  - Coma [Unknown]
  - Osteosclerosis [Not Recovered/Not Resolved]
